FAERS Safety Report 13291792 (Version 1)
Quarter: 2017Q1

REPORT INFORMATION
  Report Type: Report from Study
  Country: None (occurrence: FI)
  Receive Date: 20170303
  Receipt Date: 20170303
  Transmission Date: 20170428
  Serious: Yes (Other)
  Sender: FDA-Public Use
  Company Number: FI-BIOVITRUM-2017FI0223

PATIENT
  Sex: Female
  Weight: 8.32 kg

DRUGS (2)
  1. ORFADIN [Suspect]
     Active Substance: NITISINONE
     Indication: TYROSINAEMIA
     Dates: start: 20160508, end: 20160912
  2. ORFADIN [Suspect]
     Active Substance: NITISINONE
     Dates: start: 20160913

REACTIONS (4)
  - Alpha 1 foetoprotein increased [Unknown]
  - Hepatic function abnormal [Unknown]
  - Amino acid level decreased [Unknown]
  - Haematology test abnormal [Unknown]
